FAERS Safety Report 17709948 (Version 1)
Quarter: 2020Q2

REPORT INFORMATION
  Report Type: Spontaneous
  Country: US (occurrence: US)
  Receive Date: 20200427
  Receipt Date: 20200427
  Transmission Date: 20200714
  Serious: Yes (Other)
  Sender: FDA-Public Use
  Company Number: US-SA-2020SA106619

PATIENT
  Age: 72 Year
  Sex: Female
  Weight: 81 kg

DRUGS (47)
  1. ACYCLOVIR [ACICLOVIR] [Concomitant]
     Active Substance: ACYCLOVIR
  2. CENTRUM JUNIOR [ASCORBIC ACID;BIOTIN;CALCIUM;CALCIUM CARBONATE;CALCIUM [Concomitant]
  3. CYCLOBENZAPRINE. [Concomitant]
     Active Substance: CYCLOBENZAPRINE
  4. LIDOCAINE. [Concomitant]
     Active Substance: LIDOCAINE
  5. ZITHROMAX [Concomitant]
     Active Substance: AZITHROMYCIN DIHYDRATE
  6. BACTRIM [Concomitant]
     Active Substance: SULFAMETHOXAZOLE\TRIMETHOPRIM
  7. BUPROPION. [Concomitant]
     Active Substance: BUPROPION
  8. METOPROLOL TARTRATE. [Concomitant]
     Active Substance: METOPROLOL TARTRATE
  9. OXYCODONE HYDROCHLORIDE. [Concomitant]
     Active Substance: OXYCODONE HYDROCHLORIDE
  10. IMBRUVICA [Suspect]
     Active Substance: IBRUTINIB
     Indication: CHRONIC LYMPHOCYTIC LEUKAEMIA
     Dosage: 420 MG
     Dates: start: 20190528
  11. CLOPIDOGREL BISULFATE. [Concomitant]
     Active Substance: CLOPIDOGREL BISULFATE
  12. PREDNISONE. [Concomitant]
     Active Substance: PREDNISONE
  13. ULORIC [Concomitant]
     Active Substance: FEBUXOSTAT
  14. VITAMIN D NOS [Concomitant]
     Active Substance: VITAMIN D NOS
  15. WELLBUTRIN [Concomitant]
     Active Substance: BUPROPION HYDROCHLORIDE
  16. ANASTROZOLE. [Concomitant]
     Active Substance: ANASTROZOLE
  17. CRESTOR [Concomitant]
     Active Substance: ROSUVASTATIN CALCIUM
  18. PANTOPRAZOLE SODIUM SESQUIHYDRATE [Concomitant]
     Active Substance: PANTOPRAZOLE SODIUM
  19. PIOGLITAZONE HCL [Concomitant]
     Active Substance: PIOGLITAZONE
  20. VALACYCLOVIR HCL [Concomitant]
     Active Substance: VALACYCLOVIR HYDROCHLORIDE
  21. VESICARE [Concomitant]
     Active Substance: SOLIFENACIN SUCCINATE
  22. PLAVIX [Suspect]
     Active Substance: CLOPIDOGREL BISULFATE
     Indication: CORONARY ARTERY DISEASE
     Dosage: UNK
  23. COQ10 [UBIDECARENONE] [Concomitant]
     Active Substance: UBIDECARENONE
  24. FENOFIBRATE. [Concomitant]
     Active Substance: FENOFIBRATE
  25. FLAGYL [Concomitant]
     Active Substance: METRONIDAZOLE\METRONIDAZOLE HYDROCHLORIDE
  26. L-METHYLFOLATE CALCIUM [CALCIUM LEVOMEFOLATE] [Concomitant]
  27. NYSTATIN. [Concomitant]
     Active Substance: NYSTATIN
  28. OMEGA 3 [FISH OIL;TOCOPHEROL] [Concomitant]
     Active Substance: FISH OIL\TOCOPHEROL
  29. OMNICEF [CEFOTAXIME SODIUM] [Concomitant]
  30. TRULICITY [Concomitant]
     Active Substance: DULAGLUTIDE
  31. IMBRUVICA [Suspect]
     Active Substance: IBRUTINIB
     Dosage: 420 MG
     Dates: start: 20190707
  32. ALLOPURINOL. [Concomitant]
     Active Substance: ALLOPURINOL
  33. KEFLEX [Concomitant]
     Active Substance: CEPHALEXIN
  34. PLAVIX [Suspect]
     Active Substance: CLOPIDOGREL BISULFATE
     Dosage: 75 MG, QD
     Route: 048
  35. IMBRUVICA [Suspect]
     Active Substance: IBRUTINIB
     Dosage: 280 MG, QD
     Route: 048
     Dates: start: 20190607
  36. CARBIDOPA. [Concomitant]
     Active Substance: CARBIDOPA
  37. CHLORZOXAZONE. [Concomitant]
     Active Substance: CHLORZOXAZONE
  38. NORCO [Concomitant]
     Active Substance: ACETAMINOPHEN\HYDROCODONE BITARTRATE
  39. LORATADINE. [Concomitant]
     Active Substance: LORATADINE
  40. PROMETHAZINE HCL [Concomitant]
     Active Substance: PROMETHAZINE HYDROCHLORIDE
  41. PLAVIX [Suspect]
     Active Substance: CLOPIDOGREL BISULFATE
     Dosage: 140 MG, QD
     Route: 048
     Dates: start: 201910
  42. CALCIUM [Concomitant]
     Active Substance: CALCIUM
  43. COMPAZINE [PROCHLORPERAZINE EDISYLATE] [Concomitant]
     Active Substance: PROCHLORPERAZINE EDISYLATE
  44. FLUCONAZOLE. [Concomitant]
     Active Substance: FLUCONAZOLE
  45. ONDANSETRON [Concomitant]
     Active Substance: ONDANSETRON
  46. PROZAC [Concomitant]
     Active Substance: FLUOXETINE HYDROCHLORIDE
  47. VITAMIN E [Concomitant]
     Active Substance: .ALPHA.-TOCOPHEROL

REACTIONS (10)
  - Asthenia [Unknown]
  - Hypogammaglobulinaemia [Not Recovered/Not Resolved]
  - Thrombosis [Unknown]
  - Pharyngitis streptococcal [Recovered/Resolved]
  - Increased tendency to bruise [Recovered/Resolved]
  - Haematoma [Recovered/Resolved]
  - Fatigue [Unknown]
  - Contusion [Recovered/Resolved]
  - Haemorrhage [Unknown]
  - Cough [Recovered/Resolved]

NARRATIVE: CASE EVENT DATE: 20190709
